FAERS Safety Report 20748485 (Version 2)
Quarter: 2022Q3

REPORT INFORMATION
  Report Type: Report from Study
  Country: EG (occurrence: EG)
  Receive Date: 20220426
  Receipt Date: 20220729
  Transmission Date: 20221027
  Serious: Yes (Hospitalization, Other)
  Sender: FDA-Public Use
  Company Number: EG-NOVARTISPH-NVSC2022EG092482

PATIENT
  Age: 30 Year
  Sex: Female

DRUGS (1)
  1. GLIVEC [Suspect]
     Active Substance: IMATINIB MESYLATE
     Indication: Chronic myeloid leukaemia
     Dosage: 400 MG, QD (4 CAPS/DAY)
     Route: 048
     Dates: start: 202201, end: 20220401

REACTIONS (8)
  - Pain in extremity [Recovered/Resolved]
  - Abdominal pain upper [Recovered/Resolved]
  - Epistaxis [Recovering/Resolving]
  - Haemoglobin decreased [Recovering/Resolving]
  - Platelet count decreased [Recovering/Resolving]
  - Thrombosis [Recovering/Resolving]
  - Intentional product use issue [Recovered/Resolved]
  - Product availability issue [Unknown]

NARRATIVE: CASE EVENT DATE: 20220101
